FAERS Safety Report 9341939 (Version 1)
Quarter: 2013Q2

REPORT INFORMATION
  Report Type: Spontaneous
  Country: JP (occurrence: JP)
  Receive Date: 20130611
  Receipt Date: 20130611
  Transmission Date: 20140414
  Serious: Yes (Death)
  Sender: FDA-Public Use
  Company Number: JP-SUCAMPO PHARMA AMERICAS, INC-SPI201300391

PATIENT
  Age: 93 Year
  Sex: Female
  Weight: 38 kg

DRUGS (13)
  1. AMITIZA [Suspect]
     Indication: CONSTIPATION
     Dosage: 24 MCG, BID
     Route: 048
     Dates: start: 20130215, end: 20130408
  2. ELIETEN [Concomitant]
     Indication: GASTRITIS
     Dosage: 5 MG, BID
     Route: 048
     Dates: end: 20130408
  3. NORVASC OD [Concomitant]
     Indication: HYPERTENSION
     Dosage: 5 MG, QD
     Route: 048
     Dates: end: 20130408
  4. GASTEEL [Concomitant]
     Indication: CONSTIPATION
     Dosage: 40 MG, BID
     Route: 048
     Dates: end: 20130408
  5. DETANTOL R [Concomitant]
     Indication: HYPERTENSION
     Dosage: 6 MG, QD
     Route: 048
     Dates: end: 20130408
  6. THEODUR [Concomitant]
     Indication: BRONCHITIS CHRONIC
     Dosage: 100 MG, BID
     Route: 048
     Dates: end: 20130408
  7. VESICARE [Concomitant]
     Indication: HYPERTONIC BLADDER
     Dosage: 5 MG, QD
     Route: 048
     Dates: end: 20130408
  8. GASTER D [Concomitant]
     Indication: GASTRITIS
     Dosage: 10 MG, QD
     Route: 048
     Dates: end: 20130408
  9. ALDACTONE-A [Concomitant]
     Indication: HYPERTENSION
     Dosage: 25 MG, QD
     Route: 048
     Dates: end: 20130408
  10. AVAPRO [Concomitant]
     Dosage: 100 MG, QD
     Route: 048
     Dates: start: 201202, end: 20130408
  11. GRAMALIL [Concomitant]
     Indication: RESTLESSNESS
     Dosage: 25 MG, QD
     Route: 048
     Dates: start: 20130311, end: 20130408
  12. MYSLEE [Concomitant]
     Indication: INSOMNIA
     Dosage: 5 MG, QD
     Route: 048
     Dates: end: 20130408
  13. VOLTAREN [Concomitant]
     Indication: SPINAL OSTEOARTHRITIS
     Dosage: 25 MG, PRN
     Route: 048

REACTIONS (1)
  - Cardiac death [Fatal]
